FAERS Safety Report 9098283 (Version 1)
Quarter: 2013Q1

REPORT INFORMATION
  Report Type: Spontaneous
  Country: JP (occurrence: JP)
  Receive Date: 20130213
  Receipt Date: 20130213
  Transmission Date: 20140127
  Serious: Yes (Death)
  Sender: FDA-Public Use
  Company Number: JP-ROCHE-1190285

PATIENT
  Age: 69 Year
  Sex: Female
  Weight: 65 kg

DRUGS (14)
  1. MIRCERA [Suspect]
     Indication: NEPHROGENIC ANAEMIA
     Route: 042
     Dates: start: 20110802, end: 20110827
  2. ADALAT CR [Concomitant]
     Route: 048
     Dates: start: 20090611
  3. ITOROL [Concomitant]
     Route: 048
     Dates: start: 20090611
  4. EPADEL [Concomitant]
     Dosage: PRODUCT REPORTED AS EPADEL S
     Route: 048
     Dates: start: 20090611
  5. DIART [Concomitant]
     Route: 048
     Dates: start: 20090611
  6. CINACALCET HYDROCHLORIDE [Concomitant]
     Route: 048
     Dates: start: 20101211
  7. ONEALFA [Concomitant]
     Route: 048
     Dates: start: 20090611
  8. BLOPRESS [Concomitant]
     Route: 048
     Dates: start: 20110524
  9. VOGLIBOSE [Concomitant]
     Route: 048
     Dates: start: 20110514
  10. CALTAN [Concomitant]
     Route: 048
     Dates: start: 20100225
  11. CALCICOL [Concomitant]
     Route: 048
     Dates: start: 20110827
  12. DOPS [Concomitant]
     Dosage: TAKING WHEN BEGINING TO DIALYSE IT (THREE TIRED A WEEK)
     Route: 048
     Dates: start: 20110816
  13. HEPARIN SODIUM [Concomitant]
     Dosage: AT DIALYSIS
     Route: 042
     Dates: start: 20090515
  14. FESIN [Concomitant]
     Route: 042
     Dates: start: 20110816

REACTIONS (1)
  - Sudden death [Fatal]
